FAERS Safety Report 18258002 (Version 5)
Quarter: 2020Q4

REPORT INFORMATION
  Report Type: Spontaneous
  Country: AR (occurrence: AR)
  Receive Date: 20200911
  Receipt Date: 20201207
  Transmission Date: 20210113
  Serious: Yes (Hospitalization, Other)
  Sender: FDA-Public Use
  Company Number: AR-PFIZER INC-2020346134

PATIENT
  Age: 56 Year
  Sex: Female

DRUGS (2)
  1. GENOTROPIN [Suspect]
     Active Substance: SOMATROPIN
     Indication: GROWTH HORMONE DEFICIENCY
     Dosage: 0.1 MG TO 0.5 MG (6 TIMES PER WEEK)
     Dates: start: 20060102
  2. GENOTROPIN [Suspect]
     Active Substance: SOMATROPIN
     Dosage: 1.1 MG, EVERY OTHER DAY
     Dates: end: 201807

REACTIONS (12)
  - Cerebrovascular accident [Unknown]
  - Alopecia [Not Recovered/Not Resolved]
  - Hypotonia [Unknown]
  - Asthenia [Not Recovered/Not Resolved]
  - Depressed mood [Unknown]
  - Somnolence [Unknown]
  - Hemiplegia [Unknown]
  - Persistent depressive disorder [Unknown]
  - Cushing^s syndrome [Unknown]
  - Pituitary tumour benign [Unknown]
  - Dizziness [Unknown]
  - Illness [Unknown]

NARRATIVE: CASE EVENT DATE: 201909
